FAERS Safety Report 10613463 (Version 2)
Quarter: 2015Q1

REPORT INFORMATION
  Report Type: Spontaneous
  Country: US (occurrence: US)
  Receive Date: 20141128
  Receipt Date: 20150211
  Transmission Date: 20150720
  Serious: Yes (Hospitalization)
  Sender: FDA-Public Use
  Company Number: US-JNJFOC-20141112975

PATIENT
  Age: 30 Year
  Sex: Male
  Weight: 95.7 kg

DRUGS (12)
  1. CYMBALTA [Concomitant]
     Active Substance: DULOXETINE HYDROCHLORIDE
     Indication: DEPRESSION
     Route: 048
     Dates: start: 20130823
  2. FLAGYL [Suspect]
     Active Substance: METRONIDAZOLE\METRONIDAZOLE HYDROCHLORIDE
     Indication: SPLENIC ABSCESS
     Dosage: FOR 10 DAYS
     Route: 048
     Dates: start: 20140804
  3. SIMPONI [Concomitant]
     Active Substance: GOLIMUMAB
     Indication: CROHN^S DISEASE
     Dosage: AS NEEDED
     Route: 065
     Dates: start: 20140414
  4. ZYRTEC [Concomitant]
     Active Substance: CETIRIZINE HYDROCHLORIDE
     Indication: SEASONAL ALLERGY
     Dosage: AS NEEDED
     Route: 065
     Dates: start: 20130919
  5. VITAMIN D3 [Concomitant]
     Active Substance: CHOLECALCIFEROL
     Indication: PRODUCT USED FOR UNKNOWN INDICATION
     Route: 048
     Dates: start: 20140611
  6. OMEPRAZOLE. [Concomitant]
     Active Substance: OMEPRAZOLE
     Indication: GASTROOESOPHAGEAL REFLUX DISEASE
     Dosage: AS NEEDED
     Route: 048
     Dates: start: 2006
  7. FERROUS SULFATE [Concomitant]
     Active Substance: FERROUS SULFATE\FERROUS SULFATE, DRIED
     Indication: PRODUCT USED FOR UNKNOWN INDICATION
     Route: 048
     Dates: start: 20140611
  8. MULTIVITAMINS [Concomitant]
     Active Substance: VITAMINS
     Indication: PRODUCT USED FOR UNKNOWN INDICATION
     Dosage: AT 10 BILLION CELL
     Route: 048
     Dates: start: 20140625
  9. CULTURELLE [Concomitant]
     Active Substance: LACTOBACILLUS RHAMNOSUS
     Indication: PRODUCT USED FOR UNKNOWN INDICATION
     Dosage: AT 10 BILLION CELL
     Route: 048
     Dates: start: 20140611
  10. LEVAQUIN [Suspect]
     Active Substance: LEVOFLOXACIN
     Indication: SPLENIC ABSCESS
     Dosage: FOR 10 DAYS
     Route: 048
     Dates: start: 20140628, end: 20140708
  11. FLAGYL [Suspect]
     Active Substance: METRONIDAZOLE\METRONIDAZOLE HYDROCHLORIDE
     Indication: SPLENIC ABSCESS
     Dosage: FOR 10 DAYS
     Route: 048
     Dates: start: 20140628, end: 20140708
  12. OMEGA-3 ACIDS [Concomitant]
     Active Substance: OMEGA-3 FATTY ACIDS
     Indication: PRODUCT USED FOR UNKNOWN INDICATION
     Dosage: AT 10 BILLION CELL
     Route: 048
     Dates: start: 20140625

REACTIONS (2)
  - Clostridium difficile infection [Recovered/Resolved]
  - Small intestinal obstruction [Recovering/Resolving]

NARRATIVE: CASE EVENT DATE: 20140803
